FAERS Safety Report 22102435 (Version 2)
Quarter: 2023Q1

REPORT INFORMATION
  Report Type: Report from Study
  Country: US (occurrence: US)
  Receive Date: 20230316
  Receipt Date: 20230330
  Transmission Date: 20230418
  Serious: Yes (Other)
  Sender: FDA-Public Use
  Company Number: US-TEVA-2023-US-2865081

PATIENT
  Age: 72 Year

DRUGS (4)
  1. DAUNORUBICIN [Suspect]
     Active Substance: DAUNORUBICIN
     Indication: Acute myeloid leukaemia
     Route: 065
  2. CYTARABINE [Suspect]
     Active Substance: CYTARABINE
     Indication: Acute myeloid leukaemia
     Dosage: 100 MG/M2
     Route: 065
  3. GEMTUZUMAB OZOGAMICIN [Suspect]
     Active Substance: GEMTUZUMAB OZOGAMICIN
     Indication: Acute myeloid leukaemia
     Dosage: 3 MG/M 2 ON DAYS 1, 4 AND 7 DURING INDUCTION COURSE AND ON DAY 1 OF EACH OF THE TWO CONSOLIDATION CH
     Route: 042
  4. MIDOSTAURIN [Suspect]
     Active Substance: MIDOSTAURIN
     Indication: Acute myeloid leukaemia
     Dosage: 100 MILLIGRAM DAILY; 50MG TWICE A DAY  , DURING INDUCTION (DAYS 9-22) AND CONSOLIDATION UNTIL TRANSP
     Route: 065

REACTIONS (1)
  - Cardiac arrest [Unknown]
